FAERS Safety Report 11917748 (Version 1)
Quarter: 2016Q1

REPORT INFORMATION
  Report Type: Spontaneous
  Country: US (occurrence: US)
  Receive Date: 20160114
  Receipt Date: 20160114
  Transmission Date: 20160526
  Serious: Yes (Death, Hospitalization, Other)
  Sender: FDA-Public Use
  Company Number: US-FRESENIUS KABI-FK201600135

PATIENT
  Age: 5 Year
  Sex: Male

DRUGS (3)
  1. METHOTREXATE (MANUFACTURER UNKNOWN) [Suspect]
     Active Substance: METHOTREXATE
     Indication: CHEMOTHERAPY
     Route: 048
  2. MERCAPTOPURINE. [Suspect]
     Active Substance: MERCAPTOPURINE
     Indication: CHEMOTHERAPY
     Route: 048
  3. DEXAMETHASONE INJECTION (MANUFACTURER UNKNOWN) [Suspect]
     Active Substance: DEXAMETHASONE
     Indication: CHEMOTHERAPY
     Route: 048

REACTIONS (8)
  - Tongue ulceration [Recovering/Resolving]
  - Hepatic function abnormal [Fatal]
  - Cardio-respiratory arrest [Fatal]
  - Dermatitis [Not Recovered/Not Resolved]
  - Cardiac arrest [Recovered/Resolved]
  - Oral mucosal blistering [Recovering/Resolving]
  - Cryptococcosis [Fatal]
  - Lip ulceration [Recovering/Resolving]
